FAERS Safety Report 8127841-1 (Version None)
Quarter: 2012Q1

REPORT INFORMATION
  Report Type: 
  Country: None (occurrence: None)
  Receive Date: 20120210
  Receipt Date: 20110728
  Transmission Date: 20120608
  Serious: No
  Sender: FDA-Public Use
  Company Number: US-GLAXOSMITHKLINE-A0939561A

PATIENT
  Sex: Male

DRUGS (1)
  1. PAROXETINE [Suspect]
     Indication: PREMATURE EJACULATION
     Dosage: 10MG UNKNOWN
     Route: 048

REACTIONS (2)
  - EXPIRED DRUG ADMINISTERED [None]
  - NAUSEA [None]
